FAERS Safety Report 9323957 (Version 2)
Quarter: 2013Q2

REPORT INFORMATION
  Report Type: Spontaneous
  Country: US (occurrence: US)
  Receive Date: 20130603
  Receipt Date: 20130620
  Transmission Date: 20140414
  Serious: Yes (Other)
  Sender: FDA-Public Use
  Company Number: US-JNJFOC-20130416836

PATIENT
  Age: 6 Month
  Sex: Male
  Weight: 13.61 kg

DRUGS (2)
  1. BENADRYL [Suspect]
     Indication: SLEEP DISORDER THERAPY
     Route: 048
     Dates: start: 200605, end: 200605
  2. BENADRYL [Suspect]
     Indication: SLEEP DISORDER THERAPY
     Route: 048
     Dates: end: 200605

REACTIONS (5)
  - Asperger^s disorder [Unknown]
  - Overdose [Unknown]
  - Screaming [Recovering/Resolving]
  - Drug ineffective for unapproved indication [Unknown]
  - Drug administered to patient of inappropriate age [Unknown]
